FAERS Safety Report 7911206 (Version 8)
Quarter: 2013Q4

REPORT INFORMATION
  Report Type: Spontaneous
  Country: US (occurrence: US)
  Receive Date: 20110422
  Receipt Date: 20131211
  Transmission Date: 20140711
  Serious: Yes (Hospitalization, Other)
  Sender: FDA-Public Use
  Company Number: US-ROCHE-741664

PATIENT
  Age: 23 Year
  Sex: Male
  Weight: 49.9 kg

DRUGS (1)
  1. ACCUTANE [Suspect]
     Indication: ACNE CYSTIC
     Route: 065
     Dates: start: 199106, end: 199109

REACTIONS (8)
  - Inflammatory bowel disease [Unknown]
  - Abscess intestinal [Recovering/Resolving]
  - Fistula [Recovering/Resolving]
  - Crohn^s disease [Not Recovered/Not Resolved]
  - Depressed mood [Not Recovered/Not Resolved]
  - Osteoporosis [Not Recovered/Not Resolved]
  - Ileal stenosis [Unknown]
  - Deep vein thrombosis [Unknown]
